FAERS Safety Report 23957029 (Version 2)
Quarter: 2024Q2

REPORT INFORMATION
  Report Type: Report from Study
  Country: BR (occurrence: BR)
  Receive Date: 20240610
  Receipt Date: 20240611
  Transmission Date: 20240716
  Serious: Yes (Other)
  Sender: FDA-Public Use
  Company Number: BR-002147023-NVSC2024BR070710

PATIENT
  Sex: Female

DRUGS (3)
  1. COSENTYX [Suspect]
     Active Substance: SECUKINUMAB
     Indication: Psoriatic arthropathy
     Dosage: 1 DOSAGE FORM
     Route: 065
  2. COSENTYX [Suspect]
     Active Substance: SECUKINUMAB
     Indication: Spondylitis
     Dosage: 2 DOSAGE FORM
     Route: 065
  3. COSENTYX [Suspect]
     Active Substance: SECUKINUMAB
     Indication: Psoriasis

REACTIONS (12)
  - Psoriatic arthropathy [Recovering/Resolving]
  - Musculoskeletal stiffness [Unknown]
  - Joint stiffness [Recovering/Resolving]
  - Skin lesion [Recovering/Resolving]
  - Dyspnoea [Unknown]
  - Gait disturbance [Recovering/Resolving]
  - Pain [Unknown]
  - Pruritus [Unknown]
  - Dactylitis [Unknown]
  - Wound [Unknown]
  - Psoriasis [Unknown]
  - Drug ineffective [Unknown]
